FAERS Safety Report 21062877 (Version 1)
Quarter: 2022Q3

REPORT INFORMATION
  Report Type: Spontaneous
  Country: RU (occurrence: RU)
  Receive Date: 20220711
  Receipt Date: 20220711
  Transmission Date: 20221027
  Serious: Yes (Other)
  Sender: FDA-Public Use
  Company Number: None

PATIENT
  Age: 15 Year
  Sex: Female
  Weight: 63 kg

DRUGS (1)
  1. FIASP [Suspect]
     Active Substance: INSULIN ASPART
     Indication: Type 1 diabetes mellitus
     Dosage: 26 IU, QD (BOLUS: BREAKFAST 8 UNITS + LUNCH 8 UNITS + DINNER 8 UNITS+ SNACKS 2 UNITS)
     Route: 058
     Dates: start: 202202, end: 202205

REACTIONS (2)
  - Dermatitis atopic [Recovering/Resolving]
  - Hypoglycaemia [Recovering/Resolving]

NARRATIVE: CASE EVENT DATE: 20220201
